FAERS Safety Report 4453447-1 (Version None)
Quarter: 2004Q3

REPORT INFORMATION
  Report Type: 
  Country: None (occurrence: None)
  Receive Date: 20040920
  Receipt Date: 20040915
  Transmission Date: 20050211
  Serious: Yes (Hospitalization)
  Sender: FDA-Public Use
  Company Number: NSADSS2002028125

PATIENT
  Sex: Male

DRUGS (5)
  1. MICONAZOLE [Suspect]
     Route: 003
  2. WARFARIN SODIUM [Interacting]
     Indication: ATRIAL FIBRILLATION
     Route: 049
  3. ATENOLOL [Concomitant]
     Route: 049
  4. ISOSORBIDE MONONITRATE [Concomitant]
     Route: 049
  5. DILTIAZEM [Concomitant]
     Route: 049

REACTIONS (2)
  - INTERNATIONAL NORMALISED RATIO INCREASED [None]
  - PROTHROMBIN LEVEL DECREASED [None]
